FAERS Safety Report 18661908 (Version 2)
Quarter: 2020Q4

REPORT INFORMATION
  Report Type: Spontaneous
  Country: US (occurrence: US)
  Receive Date: 20201224
  Receipt Date: 20201229
  Transmission Date: 20210114
  Serious: Yes (Hospitalization)
  Sender: FDA-Public Use
  Company Number: US-009507513-2012USA009639

PATIENT
  Age: 71 Year
  Sex: Female

DRUGS (2)
  1. ELIQUIS [Suspect]
     Active Substance: APIXABAN
     Dosage: UNK
  2. BELSOMRA [Suspect]
     Active Substance: SUVOREXANT
     Indication: SLEEP DISORDER THERAPY
     Dosage: 10 MILLIGRAM, QD (1 PER DAY)
     Route: 048
     Dates: start: 202006

REACTIONS (6)
  - Suspected product tampering [Unknown]
  - Epistaxis [Recovered/Resolved]
  - Product quality issue [Unknown]
  - Poor quality product administered [Unknown]
  - Product packaging quantity issue [Unknown]
  - Product blister packaging issue [Unknown]

NARRATIVE: CASE EVENT DATE: 20201214
